FAERS Safety Report 21201795 (Version 1)
Quarter: 2022Q3

REPORT INFORMATION
  Report Type: Report from Study
  Country: US (occurrence: US)
  Receive Date: 20220811
  Receipt Date: 20220811
  Transmission Date: 20221027
  Serious: Yes (Hospitalization)
  Sender: FDA-Public Use
  Company Number: US-AURINIA PHARMACEUTICALS INC.-AUR-000065

PATIENT
  Age: 27 Year
  Sex: Male
  Weight: 122 kg

DRUGS (9)
  1. LUPKYNIS [Suspect]
     Active Substance: VOCLOSPORIN
     Indication: Lupus nephritis
     Dosage: 23.7 MILLIGRAM, BID
     Route: 048
     Dates: start: 20210218
  2. LUPKYNIS [Suspect]
     Active Substance: VOCLOSPORIN
     Dosage: 23.7 MILLIGRAM, BID
     Dates: start: 20210311
  3. LUPKYNIS [Suspect]
     Active Substance: VOCLOSPORIN
     Dosage: 23.7 MILLIGRAM, BID
     Route: 048
  4. LUPKYNIS [Suspect]
     Active Substance: VOCLOSPORIN
     Dosage: 23.7 MILLIGRAM, BID
     Route: 048
     Dates: start: 20210322, end: 20220205
  5. LUPKYNIS [Suspect]
     Active Substance: VOCLOSPORIN
     Dosage: 23.7 MILLIGRAM, BID
     Route: 048
     Dates: start: 20220323
  6. CELLCEPT [Concomitant]
     Active Substance: MYCOPHENOLATE MOFETIL
     Indication: Product used for unknown indication
     Dosage: 1500 MILLIGRAM, BID
  7. XARELTO [Concomitant]
     Active Substance: RIVAROXABAN
     Indication: Product used for unknown indication
     Dosage: 20 MILLIGRAM, QD
  8. PREDNISONE [Concomitant]
     Active Substance: PREDNISONE
     Indication: Product used for unknown indication
     Dosage: 15 MILLIGRAM, QD
     Route: 048
  9. PLAQUENIL [Concomitant]
     Active Substance: HYDROXYCHLOROQUINE SULFATE
     Indication: Product used for unknown indication
     Dosage: 400 MILLIGRAM, QD

REACTIONS (5)
  - Acute kidney injury [Recovered/Resolved]
  - Gastric disorder [Recovered/Resolved]
  - Incorrect dose administered [Unknown]
  - Product dose omission issue [Unknown]
  - Treatment noncompliance [Unknown]

NARRATIVE: CASE EVENT DATE: 20220205
